FAERS Safety Report 18105829 (Version 3)
Quarter: 2021Q1

REPORT INFORMATION
  Report Type: Spontaneous
  Country: US (occurrence: US)
  Receive Date: 20200803
  Receipt Date: 20210311
  Transmission Date: 20210419
  Serious: Yes (Other)
  Sender: FDA-Public Use
  Company Number: US-PFIZER INC-2020291262

PATIENT

DRUGS (1)
  1. PREMARIN [Suspect]
     Active Substance: ESTROGENS, CONJUGATED
     Dosage: UNK

REACTIONS (9)
  - Confusional state [Unknown]
  - Memory impairment [Unknown]
  - Frustration tolerance decreased [Unknown]
  - Skeletal injury [Unknown]
  - Gait disturbance [Unknown]
  - Nerve injury [Unknown]
  - Speech disorder [Unknown]
  - Irritability [Unknown]
  - Colon cancer stage III [Unknown]
